FAERS Safety Report 6220283-5 (Version None)
Quarter: 2009Q2

REPORT INFORMATION
  Report Type: 
  Country: None (occurrence: None)
  Receive Date: 20090602
  Receipt Date: 20090515
  Transmission Date: 20091009
  Serious: Yes (Other)
  Sender: FDA-Public Use
  Company Number: 200814455

PATIENT
  Sex: Female
  Weight: 136.0791 kg

DRUGS (1)
  1. VIVAGLOBIN [Suspect]
     Indication: IMMUNODEFICIENCY COMMON VARIABLE
     Dosage: 43 ML 1X/WEEK SUBCUTANEOUS, 43 ML 2X/WEEK SUBCUTANEOUS
     Route: 058
     Dates: start: 20081211, end: 20081219

REACTIONS (6)
  - HEADACHE [None]
  - MENINGITIS ASEPTIC [None]
  - MUSCULOSKELETAL STIFFNESS [None]
  - NECK PAIN [None]
  - REFUSAL OF TREATMENT BY PATIENT [None]
  - THROMBOSIS [None]
